FAERS Safety Report 9188450 (Version 3)
Quarter: 2013Q2

REPORT INFORMATION
  Report Type: Report from Study
  Country: JP (occurrence: JP)
  Receive Date: 20130325
  Receipt Date: 20130628
  Transmission Date: 20140414
  Serious: Yes (Death)
  Sender: FDA-Public Use
  Company Number: JP-GENZYME-THYM-1003709

PATIENT
  Age: 82 Year
  Sex: Male
  Weight: 66 kg

DRUGS (11)
  1. THYMOGLOBULIN [Suspect]
     Indication: APLASTIC ANAEMIA
     Dosage: 232 MG, QD
     Route: 065
     Dates: start: 20120613, end: 20120616
  2. PREDNISOLONE [Suspect]
     Indication: APLASTIC ANAEMIA
     Dosage: UNK
     Route: 065
     Dates: start: 20111114, end: 20120729
  3. PREDNISOLONE [Suspect]
     Indication: PROPHYLAXIS
     Dosage: UNK
     Route: 065
     Dates: start: 20120617, end: 20120708
  4. MENATETRENONE [Concomitant]
     Indication: PROPHYLAXIS
     Dosage: UNK
     Route: 065
     Dates: start: 201112, end: 20120729
  5. RABEPRAZOLE SODIUM [Concomitant]
     Indication: PROPHYLAXIS
     Dosage: UNK
     Route: 065
     Dates: start: 201112, end: 20120729
  6. FLUCONAZOLE [Concomitant]
     Indication: PROPHYLAXIS
     Dosage: UNK
     Route: 065
     Dates: start: 20120401, end: 20120729
  7. DEFERASIROX [Concomitant]
     Indication: HAEMOCHROMATOSIS
     Dosage: UNK
     Route: 065
     Dates: start: 201204, end: 20120729
  8. MICAFUNGIN SODIUM [Concomitant]
     Indication: ANTIFUNGAL PROPHYLAXIS
     Dosage: UNK
     Route: 065
     Dates: start: 20120630, end: 20120719
  9. DEXCHLORPHENIRAMINE MALEATE [Concomitant]
     Indication: PROPHYLAXIS
     Dosage: UNK
     Route: 065
     Dates: start: 20120611, end: 20120616
  10. ACETAMINOPHEN [Concomitant]
     Indication: PROPHYLAXIS
     Dosage: UNK
     Route: 065
     Dates: start: 20120611, end: 20120616
  11. METHYLPREDNISOLONE SODIUM SUCCINATE [Concomitant]
     Indication: PROPHYLAXIS
     Dosage: UNK
     Route: 065
     Dates: start: 20120612, end: 20120616

REACTIONS (2)
  - Gastrointestinal haemorrhage [Fatal]
  - Bronchopulmonary aspergillosis [Fatal]
